FAERS Safety Report 5811120-9 (Version None)
Quarter: 2008Q3

REPORT INFORMATION
  Report Type: 
  Country: None (occurrence: None)
  Receive Date: 20080716
  Receipt Date: 20080707
  Transmission Date: 20090109
  Serious: Yes (Death, Hospitalization)
  Sender: FDA-Public Use
  Company Number: PHBS2008CN05059

PATIENT
  Age: 41 Year
  Sex: Male

DRUGS (3)
  1. CYCLOSPORINE [Suspect]
     Indication: RENAL AND LIVER TRANSPLANT
  2. PREDNISOLONE [Suspect]
     Indication: RENAL AND LIVER TRANSPLANT
  3. CYCLOPHOSPHAMIDE [Suspect]
     Indication: RENAL AND LIVER TRANSPLANT

REACTIONS (15)
  - ABDOMINAL PAIN [None]
  - ARTERIAL RUPTURE [None]
  - ARTERIAL THERAPEUTIC PROCEDURE [None]
  - ASPERGILLOSIS [None]
  - BLOOD PRESSURE DECREASED [None]
  - COMPLICATIONS OF TRANSPLANT SURGERY [None]
  - DYSPNOEA [None]
  - GENERALISED OEDEMA [None]
  - INTRA-ABDOMINAL HAEMORRHAGE [None]
  - LAPAROTOMY [None]
  - MUCORMYCOSIS [None]
  - MULTI-ORGAN DISORDER [None]
  - MULTI-ORGAN FAILURE [None]
  - THROMBOSIS [None]
  - WOUND HAEMORRHAGE [None]
